FAERS Safety Report 6570913-3 (Version None)
Quarter: 2010Q1

REPORT INFORMATION
  Report Type: 
  Country: None (occurrence: None)
  Receive Date: 20100204
  Receipt Date: 20100126
  Transmission Date: 20100710
  Serious: Yes (Death, Hospitalization, Other)
  Sender: FDA-Public Use
  Company Number: US-BAXTER-2010BH001784

PATIENT
  Sex: Female

DRUGS (1)
  1. DIANEAL [Suspect]
     Indication: PERITONEAL DIALYSIS
     Route: 033
     Dates: start: 20080101, end: 20091216

REACTIONS (5)
  - CALCIPHYLAXIS [None]
  - OPEN WOUND [None]
  - PYREXIA [None]
  - SEPTIC SHOCK [None]
  - WOUND [None]
